FAERS Safety Report 5123210-7 (Version None)
Quarter: 2006Q4

REPORT INFORMATION
  Report Type: 
  Country: None (occurrence: None)
  Receive Date: 20061005
  Receipt Date: 20060920
  Transmission Date: 20070319
  Serious: Yes (Hospitalization)
  Sender: FDA-Public Use
  Company Number: S06-FRA-03951-01

PATIENT
  Sex: Male

DRUGS (2)
  1. SEROPLEX (ESCITALOPRAM) [Suspect]
     Dosage: 30 MG QD PO
  2. ZYPREXA [Suspect]
     Indication: ABNORMAL BEHAVIOUR

REACTIONS (3)
  - DEMENTIA [None]
  - OVERDOSE [None]
  - PARKINSONISM [None]
